FAERS Safety Report 7933695-6 (Version None)
Quarter: 2011Q4

REPORT INFORMATION
  Report Type: 
  Country: None (occurrence: None)
  Receive Date: 20111122
  Receipt Date: 20111109
  Transmission Date: 20120403
  Serious: Yes (Other)
  Sender: FDA-Public Use
  Company Number: PHHO2010FR05680

PATIENT
  Sex: Female

DRUGS (1)
  1. ILARIS [Suspect]
     Indication: MUCKLE-WELLS SYNDROME
     Dosage: FOETAL DRUG EXPOSURE VIA FARTHER

REACTIONS (2)
  - EXPOSURE VIA FATHER [None]
  - ABORTION SPONTANEOUS [None]
